FAERS Safety Report 20175390 (Version 1)
Quarter: 2021Q4

REPORT INFORMATION
  Report Type: Spontaneous
  Country: US (occurrence: None)
  Receive Date: 20211209
  Receipt Date: 20211209
  Transmission Date: 20220304
  Serious: Yes (Hospitalization)
  Sender: FDA-Public Use
  Company Number: None

PATIENT
  Age: 41 Year
  Sex: Female
  Weight: 72 kg

DRUGS (1)
  1. SOTROVIMAB [Suspect]
     Active Substance: SOTROVIMAB
     Indication: SARS-CoV-2 test positive
     Dosage: FREQUENCY : AS NEEDED;?
     Route: 041
     Dates: start: 20211209, end: 20211209

REACTIONS (4)
  - Pharyngeal swelling [None]
  - Chest discomfort [None]
  - Oxygen saturation decreased [None]
  - Anaphylactic reaction [None]

NARRATIVE: CASE EVENT DATE: 20211209
